FAERS Safety Report 13274842 (Version 2)
Quarter: 2017Q2

REPORT INFORMATION
  Report Type: Report from Study
  Country: US (occurrence: US)
  Receive Date: 20170227
  Receipt Date: 20170425
  Transmission Date: 20170830
  Serious: Yes (Hospitalization, Other)
  Sender: FDA-Public Use
  Company Number: US-ACTELION-A-US2017-148895

PATIENT
  Age: 73 Year
  Sex: Female
  Weight: 45.35 kg

DRUGS (2)
  1. OPSUMIT [Suspect]
     Active Substance: MACITENTAN
     Indication: PULMONARY ARTERIAL HYPERTENSION
     Dosage: 10 MG, QD
     Route: 048
     Dates: start: 20140805
  2. ADEMPAS [Concomitant]
     Active Substance: RIOCIGUAT

REACTIONS (6)
  - Haemoglobin decreased [Unknown]
  - Transfusion [Unknown]
  - Pulmonary thrombosis [Unknown]
  - Urinary tract infection [Unknown]
  - Dyspnoea [Unknown]
  - Intestinal obstruction [Unknown]
